FAERS Safety Report 14889750 (Version 1)
Quarter: 2018Q2

REPORT INFORMATION
  Report Type: Spontaneous
  Country: US (occurrence: US)
  Receive Date: 20180514
  Receipt Date: 20180514
  Transmission Date: 20180711
  Serious: No
  Sender: FDA-Public Use
  Company Number: US-009507513-1804USA008785

PATIENT
  Age: 14 Year
  Sex: Female

DRUGS (1)
  1. ASMANEX [Suspect]
     Active Substance: MOMETASONE FUROATE
     Indication: ASTHMA
     Dosage: 1 PUFF (220 MICROGRAM) EVERY EVENING, 120-DOSE CONTAINER
     Route: 055

REACTIONS (2)
  - Intentional product use issue [Unknown]
  - No adverse event [Unknown]
